FAERS Safety Report 4873137-0 (Version None)
Quarter: 2006Q1

REPORT INFORMATION
  Report Type: 
  Country: None (occurrence: None)
  Receive Date: 20060105
  Receipt Date: 20051025
  Transmission Date: 20060701
  Serious: Yes (Other)
  Sender: FDA-Public Use
  Company Number: GB-GLAXOSMITHKLINE-B0399202A

PATIENT
  Sex: Female

DRUGS (3)
  1. PAROXETINE HCL [Suspect]
     Route: 065
  2. STILNOCT [Concomitant]
     Route: 065
  3. ZOPICLONE [Concomitant]
     Route: 065

REACTIONS (3)
  - AGGRESSION [None]
  - COMPLETED SUICIDE [None]
  - ILL-DEFINED DISORDER [None]
